FAERS Safety Report 8898842 (Version 1)
Quarter: 2012Q4

REPORT INFORMATION
  Report Type: 
  Country: US (occurrence: US)
  Receive Date: 20121109
  Receipt Date: 20121109
  Transmission Date: 20130627
  Serious: Yes (Hospitalization)
  Sender: FDA-Public Use
  Company Number: US-BRISTOL-MYERS SQUIBB COMPANY-17095977

PATIENT

DRUGS (1)
  1. YERVOY [Suspect]

REACTIONS (1)
  - Dehydration [Unknown]
